FAERS Safety Report 4355294-8 (Version None)
Quarter: 2004Q2

REPORT INFORMATION
  Report Type: 
  Country: None (occurrence: None)
  Receive Date: 20040505
  Receipt Date: 20040426
  Transmission Date: 20050107
  Serious: Yes (Death)
  Sender: FDA-Public Use
  Company Number: BE-SHR-04-024203

PATIENT
  Age: 73 Year
  Sex: Female

DRUGS (3)
  1. FLUDARA [Suspect]
     Indication: ALLOGENIC BONE MARROW TRANSPLANTATION THERAPY
     Dosage: 30 MG/M2, 1XDAY
     Dates: start: 20040122, end: 20040124
  2. CYCLOPHOSPHAMIDE [Concomitant]
  3. ATG-FRESENIUS (ANTITHYMOCYTE IMMUNOGLOBULIN) [Concomitant]

REACTIONS (4)
  - DIALYSIS [None]
  - DISEASE PROGRESSION [None]
  - MULTI-ORGAN FAILURE [None]
  - PNEUMONIA [None]
